FAERS Safety Report 16971920 (Version 2)
Quarter: 2019Q4

REPORT INFORMATION
  Report Type: Spontaneous
  Country: FR (occurrence: FR)
  Receive Date: 20191029
  Receipt Date: 20191105
  Transmission Date: 20200122
  Serious: Yes (Hospitalization, Other)
  Sender: FDA-Public Use
  Company Number: FR-PFIZER INC-2019466658

PATIENT
  Age: 89 Year
  Sex: Female
  Weight: 65 kg

DRUGS (9)
  1. EUPANTOL [Concomitant]
     Active Substance: PANTOPRAZOLE SODIUM
     Dosage: UNK
  2. BACTRIM [Concomitant]
     Active Substance: SULFAMETHOXAZOLE\TRIMETHOPRIM
     Dosage: UNK
  3. SOLUPRED [PREDNISOLONE METASULFOBENZOATE SODIUM] [Concomitant]
     Active Substance: PREDNISOLONE SODIUM METAZOATE
     Dosage: UNK
  4. BISOPROLOL HEMIFUMARATE [Suspect]
     Active Substance: BISOPROLOL FUMARATE
     Indication: ATRIAL FIBRILLATION
     Dosage: 5 MG, 1X/DAY
     Route: 048
     Dates: end: 20180804
  5. IMOVANE [Concomitant]
     Active Substance: ZOPICLONE
     Dosage: UNK
  6. CALCIPARINE [Concomitant]
     Active Substance: HEPARIN CALCIUM
     Dosage: UNK
  7. CORDARONE [Suspect]
     Active Substance: AMIODARONE HYDROCHLORIDE
     Indication: ATRIAL FIBRILLATION
     Dosage: 200 MG, 1X/DAY
     Route: 048
     Dates: start: 2013, end: 20180804
  8. LERCAN [Concomitant]
     Active Substance: LERCANIDIPINE
     Dosage: UNK
  9. EUPRESSYL [URAPIDIL HYDROCHLORIDE] [Concomitant]
     Active Substance: URAPIDIL HYDROCHLORIDE
     Dosage: UNK

REACTIONS (2)
  - Bradycardia [Recovered/Resolved]
  - Sinus node dysfunction [Recovered/Resolved]

NARRATIVE: CASE EVENT DATE: 20180804
